FAERS Safety Report 5570156-6 (Version None)
Quarter: 2007Q4

REPORT INFORMATION
  Report Type: 
  Country: None (occurrence: None)
  Receive Date: 20071220
  Receipt Date: 20071213
  Transmission Date: 20080405
  Serious: Yes (Other)
  Sender: FDA-Public Use
  Company Number: US-PFIZER INC-2007059977

PATIENT
  Sex: Female
  Weight: 62.7 kg

DRUGS (5)
  1. CHANTIX [Suspect]
     Indication: SMOKING CESSATION THERAPY
     Route: 048
  2. VYTORIN [Concomitant]
     Indication: BLOOD CHOLESTEROL
  3. LAMISIL [Concomitant]
     Indication: TINEA PEDIS
  4. VALSARTAN [Concomitant]
  5. NEXIUM [Concomitant]
     Indication: STOMACH DISCOMFORT

REACTIONS (2)
  - AGEUSIA [None]
  - DRUG HYPERSENSITIVITY [None]
